FAERS Safety Report 16758808 (Version 1)
Quarter: 2019Q3

REPORT INFORMATION
  Report Type: Spontaneous
  Country: CN (occurrence: CN)
  Receive Date: 20190830
  Receipt Date: 20190830
  Transmission Date: 20191005
  Serious: Yes (Other)
  Sender: FDA-Public Use
  Company Number: CN-MICRO LABS LIMITED-ML2019-02088

PATIENT
  Age: 27 Year
  Sex: Female

DRUGS (2)
  1. LEVETIRACETAM. [Suspect]
     Active Substance: LEVETIRACETAM
     Indication: SEIZURE
     Dosage: INITIAL DOSE 500 MG/DAY AND MAXIMUM DOSE 500 MG/DAY.
  2. LAMOTRIGINE. [Suspect]
     Active Substance: LAMOTRIGINE
     Indication: SEIZURE
     Dosage: INITIAL DOSE 25 MG/DAY AND MAXIMUM DOSE 25 MG/DAY.

REACTIONS (2)
  - Skin reaction [Unknown]
  - Therapeutic product cross-reactivity [Unknown]
